FAERS Safety Report 9611688 (Version 4)
Quarter: 2014Q1

REPORT INFORMATION
  Report Type: Spontaneous
  Country: US (occurrence: US)
  Receive Date: 20131010
  Receipt Date: 20140130
  Transmission Date: 20141002
  Serious: No
  Sender: FDA-Public Use
  Company Number: US-PFIZER INC-2013282938

PATIENT
  Age: 44 Year
  Sex: Male
  Weight: 104 kg

DRUGS (14)
  1. ENBREL [Suspect]
     Indication: RHEUMATOID ARTHRITIS
     Dosage: UNK
  2. TYLENOL W/CODEINE [Concomitant]
     Dosage: UNK
  3. TYLENOL COLD [Concomitant]
     Dosage: UNK
  4. FENOFIBRATE [Concomitant]
     Dosage: 130 MG, UNK
  5. LOSARTAN POTASSIUM [Concomitant]
     Dosage: 100 MG, UNK
  6. CYMBALTA [Concomitant]
     Dosage: 20 MG, UNK
  7. PREDNISONE [Concomitant]
     Dosage: 2.5 MG, UNK
  8. METHOTREXATE [Concomitant]
     Dosage: 25 MG, UNK
  9. ANDROGEL [Concomitant]
     Dosage: GEL PUMP 1 %, UNK
  10. HALOBETASOL PROPIONATE [Concomitant]
     Dosage: 0.05 %, UNK
  11. FISH OIL [Concomitant]
     Dosage: UNK
  12. FOLIC ACID [Concomitant]
     Dosage: UNK
  13. VITAMIN D3 [Concomitant]
     Dosage: 10000 UNIT, UNK
  14. NASONEX [Concomitant]
     Dosage: 50 UG, UNK

REACTIONS (1)
  - Drug hypersensitivity [Unknown]
